FAERS Safety Report 7764460-0 (Version None)
Quarter: 2011Q3

REPORT INFORMATION
  Report Type: 
  Country: None (occurrence: None)
  Receive Date: 20110921
  Receipt Date: 20110916
  Transmission Date: 20111222
  Serious: Yes (Other)
  Sender: FDA-Public Use
  Company Number: US-SANOFI-AVENTIS-2011SA050896

PATIENT
  Age: 83 Year
  Sex: Female
  Weight: 55 kg

DRUGS (9)
  1. VITAMIN D [Concomitant]
  2. DIOVAN [Concomitant]
  3. CALCIUM CARBONATE [Concomitant]
  4. FISH OIL [Concomitant]
  5. MULTAQ [Suspect]
     Indication: ATRIAL FIBRILLATION
     Route: 048
     Dates: start: 20110301
  6. DABIGATRAN ETEXILATE [Suspect]
     Route: 065
     Dates: start: 20110101, end: 20110101
  7. PHENOBARBITAL TAB [Concomitant]
     Dosage: 60 MG IN THE MORNING AND 90 MG AT NIGHT FOR 4-5 YEARS
  8. DABIGATRAN ETEXILATE [Suspect]
     Indication: ATRIAL FIBRILLATION
     Route: 065
     Dates: start: 20110501, end: 20110101
  9. PROTONIX [Concomitant]

REACTIONS (5)
  - BLOOD SODIUM DECREASED [None]
  - BALANCE DISORDER [None]
  - CONJUNCTIVAL HAEMORRHAGE [None]
  - FALL [None]
  - OEDEMA PERIPHERAL [None]
